FAERS Safety Report 6095627-8 (Version None)
Quarter: 2009Q1

REPORT INFORMATION
  Report Type: 
  Country: None (occurrence: None)
  Receive Date: 20090227
  Receipt Date: 20080509
  Transmission Date: 20090719
  Serious: No
  Sender: FDA-Public Use
  Company Number: A0727238A

PATIENT
  Age: 43 Year
  Sex: Male

DRUGS (3)
  1. LAMICTAL [Suspect]
     Indication: BIPOLAR DISORDER
     Dosage: 300MG PER DAY
     Route: 048
     Dates: start: 20070101
  2. ZOCOR [Concomitant]
  3. RITALIN [Concomitant]

REACTIONS (2)
  - DRUG INEFFECTIVE [None]
  - PROTEIN TOTAL ABNORMAL [None]
